FAERS Safety Report 9168137 (Version 1)
Quarter: 2013Q1

REPORT INFORMATION
  Report Type: Spontaneous
  Country: US (occurrence: None)
  Receive Date: 20130225
  Receipt Date: 20130225
  Transmission Date: 20140127
  Serious: Yes (Hospitalization)
  Sender: FDA-Public Use
  Company Number: 2013PROUSA02482

PATIENT
  Age: 86 Year
  Sex: Male

DRUGS (3)
  1. PROVENGE (SIPULEUCEL-T) SUSPENSION, 250ML [Suspect]
     Route: 042
     Dates: start: 20121206, end: 20121206
  2. FENTANYL (FENTANYL) [Suspect]
     Indication: PROSTATE CANCER METASTATIC
  3. FENTANYL (FENTANYL) [Suspect]

REACTIONS (1)
  - Hypotension [None]
